FAERS Safety Report 10590114 (Version 1)
Quarter: 2014Q4

REPORT INFORMATION
  Report Type: Spontaneous
  Country: US (occurrence: US)
  Receive Date: 20141118
  Receipt Date: 20141118
  Transmission Date: 20150529
  Serious: No
  Sender: FDA-Public Use
  Company Number: US-009507513-1410USA006616

PATIENT
  Age: 43 Year
  Sex: Male

DRUGS (2)
  1. ASPIRIN. [Suspect]
     Active Substance: ASPIRIN
     Indication: HEADACHE
     Dosage: UNK, UNKNOWN
  2. CLARITIN-D 24 HOUR [Suspect]
     Active Substance: LORATADINE\PSEUDOEPHEDRINE SULFATE
     Indication: HYPERSENSITIVITY
     Dosage: UNK, UNKNOWN
     Route: 048

REACTIONS (8)
  - Dizziness [Unknown]
  - Headache [Unknown]
  - Panic reaction [Unknown]
  - Asthenia [Unknown]
  - Palpitations [Unknown]
  - Unevaluable event [Unknown]
  - Feeling abnormal [Unknown]
  - Somnolence [Unknown]
